FAERS Safety Report 4471166-2 (Version None)
Quarter: 2004Q4

REPORT INFORMATION
  Report Type: 
  Country: None (occurrence: None)
  Receive Date: 20041004
  Receipt Date: 20040917
  Transmission Date: 20050328
  Serious: Yes (Hospitalization)
  Sender: FDA-Public Use
  Company Number: B0346017A

PATIENT
  Age: 56 Year
  Sex: Male

DRUGS (1)
  1. SUMATRIPTAN SUCCINATE [Suspect]

REACTIONS (7)
  - ANGIODYSPLASIA [None]
  - ANXIETY [None]
  - CAROTID ARTERY OCCLUSION [None]
  - DYSARTHRIA [None]
  - HEMIPLEGIA TRANSIENT [None]
  - ISCHAEMIC STROKE [None]
  - NERVOUS SYSTEM DISORDER [None]
